FAERS Safety Report 25223832 (Version 1)
Quarter: 2025Q2

REPORT INFORMATION
  Report Type: Spontaneous
  Country: BE (occurrence: BE)
  Receive Date: 20250422
  Receipt Date: 20250422
  Transmission Date: 20250717
  Serious: Yes (Death, Other)
  Sender: RANBAXY
  Company Number: BE-SUN PHARMACEUTICAL INDUSTRIES LTD-2025R1-504536

PATIENT
  Age: 57 Year
  Sex: Male

DRUGS (2)
  1. AMPHOTERICIN B [Suspect]
     Active Substance: AMPHOTERICIN B
     Indication: Bronchopulmonary aspergillosis
     Route: 065
  2. VORICONAZOLE [Suspect]
     Active Substance: VORICONAZOLE
     Indication: Bronchopulmonary aspergillosis
     Route: 065

REACTIONS (3)
  - Cerebral aspergillosis [Fatal]
  - Drug ineffective [Fatal]
  - Drug resistance [Fatal]
